FAERS Safety Report 6802060-7 (Version None)
Quarter: 2010Q2

REPORT INFORMATION
  Report Type: 
  Country: None (occurrence: None)
  Receive Date: 20100629
  Receipt Date: 20070816
  Transmission Date: 20101027
  Serious: No
  Sender: FDA-Public Use
  Company Number: US-PFIZER INC-2007068348

PATIENT
  Sex: Female
  Weight: 57 kg

DRUGS (2)
  1. ALDACTONE [Suspect]
     Indication: ACNE
     Dates: start: 20060101
  2. FEMHRT [Concomitant]

REACTIONS (1)
  - PRURITUS [None]
